FAERS Safety Report 9275888 (Version 1)
Quarter: 2013Q2

REPORT INFORMATION
  Report Type: Other
  Country: CA (occurrence: CA)
  Receive Date: 20130507
  Receipt Date: 20130507
  Transmission Date: 20140414
  Serious: Yes (Other)
  Sender: FDA-Public Use
  Company Number: CA-NAPPMUNDI-GBR-2013-0013880

PATIENT
  Age: 74 Year
  Sex: Female

DRUGS (8)
  1. MORPHINE SULFATE [Suspect]
     Indication: PAIN
     Dosage: 30 MG, UNK
  2. MIRTAZAPINE [Concomitant]
     Indication: DEPRESSION
     Dosage: 30 MG, DAILY
  3. FUROSEMIDE [Concomitant]
     Indication: OEDEMA PERIPHERAL
     Dosage: 40 MG, DAILY
  4. DOCUSATE SODIUM [Concomitant]
     Indication: CONSTIPATION
     Dosage: 200 MG, UNK
  5. LACTULOSE [Concomitant]
     Indication: CONSTIPATION
     Dosage: 30 ML, DAILY
  6. BISACODYL [Concomitant]
     Indication: CONSTIPATION
     Dosage: 10 MG DAILY PRN
  7. SODIUM PHOSPHATE [Concomitant]
     Indication: CONSTIPATION
     Dosage: 130 ML DAILY PRN
  8. DIMENHYDRINATE [Concomitant]
     Indication: VOMITING
     Dosage: 50 MG, UNK

REACTIONS (2)
  - Delirium [Unknown]
  - Intestinal obstruction [Unknown]
